FAERS Safety Report 10446058 (Version 1)
Quarter: 2014Q3

REPORT INFORMATION
  Report Type: Spontaneous
  Country: CM (occurrence: CM)
  Receive Date: 20140910
  Receipt Date: 20140910
  Transmission Date: 20150326
  Serious: Yes (Life-Threatening, Hospitalization)
  Sender: FDA-Public Use
  Company Number: CM-009507513-1409CMR003338

PATIENT
  Age: 5 Year
  Sex: Female
  Weight: 20 kg

DRUGS (3)
  1. ALBENDAZOLE [Interacting]
     Active Substance: ALBENDAZOLE
     Indication: ONCHOCERCIASIS
     Dosage: 1 DF, PRN
     Dates: start: 20140719
  2. MECTIZAN [Suspect]
     Active Substance: IVERMECTIN
     Indication: FILARIASIS LYMPHATIC
     Dosage: 1 DF, PRN
     Route: 048
     Dates: start: 20140719
  3. ALBENDAZOLE [Interacting]
     Active Substance: ALBENDAZOLE
     Indication: FILARIASIS LYMPHATIC

REACTIONS (4)
  - Asthenia [Recovered/Resolved]
  - Abasia [Recovered/Resolved]
  - Paresis [Recovered/Resolved]
  - Oedema peripheral [Recovered/Resolved]

NARRATIVE: CASE EVENT DATE: 20140720
